FAERS Safety Report 9675522 (Version 4)
Quarter: 2017Q3

REPORT INFORMATION
  Report Type: Spontaneous
  Country: CO (occurrence: CO)
  Receive Date: 20131107
  Receipt Date: 20170817
  Transmission Date: 20171128
  Serious: Yes (Other)
  Sender: FDA-Public Use
  Company Number: CO-AMGEN-COLSP2013077632

PATIENT
  Age: 67 Year
  Sex: Female

DRUGS (7)
  1. EUTIROX [Concomitant]
     Active Substance: LEVOTHYROXINE SODIUM
     Indication: THYROID DISORDER
     Dosage: 50 UG, 1X/DAY
     Route: 048
  2. ENBREL [Suspect]
     Active Substance: ETANERCEPT
     Dosage: 50 MG, MONTHLY
     Route: 058
     Dates: start: 20130123, end: 201407
  3. ARAVA [Suspect]
     Active Substance: LEFLUNOMIDE
     Indication: RHEUMATOID ARTHRITIS
     Dosage: 20 MG, WEEKLY
     Route: 048
     Dates: start: 201301
  4. GOLIMUMAB [Suspect]
     Active Substance: GOLIMUMAB
     Indication: RHEUMATOID ARTHRITIS
     Dosage: UNK
     Route: 065
     Dates: start: 201408
  5. TOCILIZUMAB. [Suspect]
     Active Substance: TOCILIZUMAB
     Indication: RHEUMATOID ARTHRITIS
     Dosage: UNK
     Route: 065
     Dates: start: 20161201, end: 20161228
  6. ENBREL [Suspect]
     Active Substance: ETANERCEPT
     Indication: RHEUMATOID ARTHRITIS
     Dosage: 50 MG, WEEKLY
     Route: 058
     Dates: start: 201301
  7. METHOTREXATE SODIUM. [Suspect]
     Active Substance: METHOTREXATE SODIUM
     Indication: RHEUMATOID ARTHRITIS
     Dosage: 4 TABLETS, WEEKLY
     Route: 048
     Dates: start: 201301

REACTIONS (10)
  - Product use issue [Unknown]
  - Toxicity to various agents [Recovered/Resolved]
  - Decreased immune responsiveness [Recovered/Resolved]
  - Osteoporosis [Unknown]
  - Toxic skin eruption [Unknown]
  - Injury [Recovered/Resolved]
  - Drug dependence [Recovered/Resolved]
  - Hypersensitivity [Recovered/Resolved]
  - C-reactive protein decreased [Unknown]
  - Skin wound [Unknown]

NARRATIVE: CASE EVENT DATE: 20130123
